FAERS Safety Report 5198942-5 (Version None)
Quarter: 2006Q4

REPORT INFORMATION
  Report Type: 
  Country: None (occurrence: None)
  Receive Date: 20060920
  Receipt Date: 20050701
  Transmission Date: 20070319
  Serious: Yes (Death)
  Sender: FDA-Public Use
  Company Number: 05P-163-0304740-00

PATIENT
  Age: 80 Year
  Sex: Female

DRUGS (1)
  1. SYNTHROID [Suspect]

REACTIONS (1)
  - DEATH [None]
